FAERS Safety Report 15591188 (Version 2)
Quarter: 2018Q4

REPORT INFORMATION
  Report Type: Report from Study
  Country: US (occurrence: US)
  Receive Date: 20181107
  Receipt Date: 20181113
  Transmission Date: 20190205
  Serious: Yes (Death)
  Sender: FDA-Public Use
  Company Number: US-TEVA-2018-US-972705

PATIENT
  Age: 55 Year
  Sex: Female
  Weight: 66 kg

DRUGS (6)
  1. METHADONE [Suspect]
     Active Substance: METHADONE HYDROCHLORIDE
     Route: 065
  2. METHAMPHETAMINE [Suspect]
     Active Substance: METHAMPHETAMINE
     Route: 065
  3. MORPHINE [Suspect]
     Active Substance: MORPHINE
     Route: 065
  4. CODEINE [Suspect]
     Active Substance: CODEINE
     Route: 065
  5. AMPHETAMINE [Suspect]
     Active Substance: AMPHETAMINE
     Route: 065
  6. PHENCYCLIDINE [Suspect]
     Active Substance: PHENCYCLIDINE
     Route: 065

REACTIONS (1)
  - Accidental overdose [Fatal]
